FAERS Safety Report 6748393-4 (Version None)
Quarter: 2010Q2

REPORT INFORMATION
  Report Type: 
  Country: None (occurrence: None)
  Receive Date: 20100601
  Receipt Date: 20100113
  Transmission Date: 20101027
  Serious: Yes (Other)
  Sender: FDA-Public Use
  Company Number: US-ASTRAZENECA-2007UW08617

PATIENT
  Sex: Female

DRUGS (4)
  1. SEROQUEL [Suspect]
     Dosage: 200 MG II BID
     Route: 048
     Dates: start: 20000211
  2. ELAVIL [Concomitant]
     Dosage: 100 MG II HS
     Dates: start: 20000211, end: 20000310
  3. KLONOPIN [Concomitant]
     Dosage: 1 MG QID PRN
     Dates: start: 20070101
  4. METHYLPHENIDATE (RITALIN) [Concomitant]
     Dosage: 5 MG QAM PRN
     Dates: start: 20070101

REACTIONS (3)
  - DIABETES MELLITUS [None]
  - NEUROPATHY PERIPHERAL [None]
  - TYPE 1 DIABETES MELLITUS [None]
